FAERS Safety Report 25583017 (Version 1)
Quarter: 2025Q3

REPORT INFORMATION
  Report Type: Spontaneous
  Country: US (occurrence: US)
  Receive Date: 20250721
  Receipt Date: 20250721
  Transmission Date: 20251021
  Serious: No
  Sender: ALKERMES
  Company Number: US-ALKERMES INC.-ALK-2025-001838

PATIENT
  Age: 62 Year
  Sex: Female

DRUGS (1)
  1. LYBALVI [Suspect]
     Active Substance: OLANZAPINE\SAMIDORPHAN L-MALATE
     Indication: Bipolar I disorder
     Route: 048
     Dates: start: 202506

REACTIONS (1)
  - Disorientation [Recovered/Resolved]

NARRATIVE: CASE EVENT DATE: 20250101
